FAERS Safety Report 12280000 (Version 1)
Quarter: 2016Q2

REPORT INFORMATION
  Report Type: Spontaneous
  Country: US (occurrence: US)
  Receive Date: 20160418
  Receipt Date: 20160418
  Transmission Date: 20160815
  Serious: Yes (Other)
  Sender: FDA-Public Use
  Company Number: US-AMGEN-USASP2016046643

PATIENT
  Age: 56 Year
  Sex: Male

DRUGS (5)
  1. PREDNISONE. [Concomitant]
     Active Substance: PREDNISONE
     Dosage: 4 MG, QD
  2. HUMIRA [Concomitant]
     Active Substance: ADALIMUMAB
  3. SIMPONI [Suspect]
     Active Substance: GOLIMUMAB
     Indication: PRODUCT USED FOR UNKNOWN INDICATION
     Dosage: UNK
     Route: 065
  4. METHOTREXATE [Concomitant]
     Active Substance: METHOTREXATE
     Dosage: UNK
  5. ENBREL [Suspect]
     Active Substance: ETANERCEPT
     Indication: RHEUMATOID ARTHRITIS
     Dosage: UNK UNK, QWK
     Route: 065

REACTIONS (12)
  - Bursitis [Unknown]
  - Eye disorder [Unknown]
  - Malaise [Unknown]
  - Feeling abnormal [Unknown]
  - Rhinoplasty [Unknown]
  - Deafness unilateral [Unknown]
  - Localised infection [Unknown]
  - Sjogren^s syndrome [Unknown]
  - Nasal congestion [Unknown]
  - Mass excision [Unknown]
  - Skin cancer [Unknown]
  - Productive cough [Unknown]
